FAERS Safety Report 6978136-0 (Version None)
Quarter: 2010Q3

REPORT INFORMATION
  Report Type: 
  Country: None (occurrence: None)
  Receive Date: 20100913
  Receipt Date: 20100827
  Transmission Date: 20110219
  Serious: Yes (Hospitalization)
  Sender: FDA-Public Use
  Company Number: US-BAYER-201024609NA

PATIENT
  Age: 28 Year
  Sex: Female

DRUGS (10)
  1. YAZ [Suspect]
     Indication: ACNE
     Route: 048
     Dates: start: 20070601, end: 20090101
  2. ZOLOFT [Concomitant]
     Indication: ANXIETY
     Dates: start: 20040101
  3. BIOTIN [Concomitant]
  4. FIBER [Concomitant]
  5. FISH OIL [Concomitant]
  6. TYLENOL [Concomitant]
  7. VITAMIN E [Concomitant]
  8. DIFFERIN [Concomitant]
  9. PAMELOR [Concomitant]
  10. TOPROL-XL [Concomitant]

REACTIONS (11)
  - ABDOMINAL PAIN UPPER [None]
  - CHOLECYSTITIS CHRONIC [None]
  - CHOLELITHIASIS [None]
  - CONSTIPATION [None]
  - GALLBLADDER PAIN [None]
  - NAUSEA [None]
  - PAIN [None]
  - PORTAL TRIADITIS [None]
  - POST PROCEDURAL COMPLICATION [None]
  - SPLENOMEGALY [None]
  - VOMITING [None]
